FAERS Safety Report 25879024 (Version 1)
Quarter: 2025Q4

REPORT INFORMATION
  Report Type: Report from Study
  Country: US (occurrence: US)
  Receive Date: 20251003
  Receipt Date: 20251003
  Transmission Date: 20260117
  Serious: Yes (Other)
  Sender: ALEXION PHARMACEUTICALS
  Company Number: 202509USA025502US

PATIENT
  Age: 47 Year
  Sex: Female

DRUGS (1)
  1. STRENSIQ [Suspect]
     Active Substance: ASFOTASE ALFA
     Indication: Phosphorus metabolism disorder
     Dosage: 70 MILLIGRAM, Q4W
     Route: 065

REACTIONS (9)
  - Gastritis erosive [Unknown]
  - Porokeratosis [Unknown]
  - Dysbiosis [Unknown]
  - Hepatic steatosis [Unknown]
  - Coronary artery disease [Unknown]
  - Hypertension [Unknown]
  - Supraventricular tachycardia [Unknown]
  - Stenosis [Unknown]
  - Dysbiosis [Unknown]
